FAERS Safety Report 13550414 (Version 1)
Quarter: 2017Q2

REPORT INFORMATION
  Report Type: Spontaneous
  Country: US (occurrence: US)
  Receive Date: 20170516
  Receipt Date: 20170516
  Transmission Date: 20170830
  Serious: No
  Sender: FDA-Public Use
  Company Number: US-BAYER-2017-091394

PATIENT
  Age: 62 Year
  Sex: Female

DRUGS (1)
  1. GADAVIST [Suspect]
     Active Substance: GADOBUTROL
     Indication: DIAGNOSTIC PROCEDURE
     Dosage: 7 ML, ONCE
     Route: 042

REACTIONS (4)
  - Oropharyngeal pain [None]
  - Cough [None]
  - Sneezing [None]
  - Dry throat [None]

NARRATIVE: CASE EVENT DATE: 20170505
